FAERS Safety Report 20913913 (Version 3)
Quarter: 2022Q4

REPORT INFORMATION
  Report Type: Spontaneous
  Country: US (occurrence: US)
  Receive Date: 20220604
  Receipt Date: 20221215
  Transmission Date: 20230113
  Serious: Yes (Other)
  Sender: FDA-Public Use
  Company Number: US-BRISTOL-MYERS SQUIBB COMPANY-2022-052253

PATIENT
  Age: 65 Year
  Sex: Female

DRUGS (2)
  1. REVLIMID [Suspect]
     Active Substance: LENALIDOMIDE
     Indication: Plasma cell myeloma
     Dosage: FREQUENCY OTHER
     Route: 048
     Dates: start: 202110
  2. DECADRON [Concomitant]
     Active Substance: DEXAMETHASONE
     Indication: Plasma cell myeloma
     Dosage: FREQUENCY- ONCE WEEK
     Route: 048
     Dates: start: 20220728

REACTIONS (3)
  - Stomatitis [Unknown]
  - Cellulitis [Unknown]
  - Dermatitis [Unknown]

NARRATIVE: CASE EVENT DATE: 20220526
